FAERS Safety Report 5054928-2 (Version None)
Quarter: 2006Q2

REPORT INFORMATION
  Report Type: 
  Country: None (occurrence: None)
  Receive Date: 20060614
  Receipt Date: 20060228
  Transmission Date: 20061013
  Serious: No
  Sender: FDA-Public Use
  Company Number: US200603000230

PATIENT
  Age: 71 Year
  Sex: Male

DRUGS (5)
  1. CIALIS [Suspect]
     Indication: ERECTILE DYSFUNCTION
     Dosage: 10 MG
     Route: 065
  2. GEMFIBROZIL [Concomitant]
  3. FOSAMAX [Concomitant]
  4. SALSALATE (SALSALATE) [Concomitant]
  5. MULTIVITAMINS (ASCORBIC ACID, ERGOCALCIFEROL, FOLIC ACID, NICOTINAMIDE [Concomitant]

REACTIONS (1)
  - SPONTANEOUS PENILE ERECTION [None]
